FAERS Safety Report 16406209 (Version 1)
Quarter: 2019Q2

REPORT INFORMATION
  Report Type: Spontaneous
  Country: US (occurrence: US)
  Receive Date: 20190607
  Receipt Date: 20190607
  Transmission Date: 20190711
  Serious: No
  Sender: FDA-Public Use
  Company Number: US-ALLERGAN-1845720US

PATIENT
  Age: 39 Year
  Sex: Female

DRUGS (2)
  1. VIBERZI [Suspect]
     Active Substance: ELUXADOLINE
     Indication: IRRITABLE BOWEL SYNDROME
     Dosage: 75 MG, 1-2 TIMES PER DAY
     Route: 048
     Dates: start: 2016, end: 20180830
  2. OTHER UNSPCIFIED MEDICATION [Concomitant]
     Dosage: UNK
     Route: 065
     Dates: end: 20180830

REACTIONS (2)
  - Biliary colic [Recovered/Resolved]
  - Hepatic enzyme increased [Not Recovered/Not Resolved]

NARRATIVE: CASE EVENT DATE: 2018
